FAERS Safety Report 7707760-2 (Version None)
Quarter: 2011Q3

REPORT INFORMATION
  Report Type: 
  Country: None (occurrence: None)
  Receive Date: 20110824
  Receipt Date: 20110819
  Transmission Date: 20111222
  Serious: Yes (Other)
  Sender: FDA-Public Use
  Company Number: US-ABBOTT-11P-163-0834674-00

PATIENT
  Sex: Female

DRUGS (2)
  1. METHOTREXATE [Concomitant]
     Indication: PRODUCT USED FOR UNKNOWN INDICATION
  2. HUMIRA [Suspect]
     Indication: RHEUMATOID ARTHRITIS
     Route: 058
     Dates: start: 20110301, end: 20110501

REACTIONS (10)
  - LIPOMA [None]
  - ARTHRALGIA [None]
  - SWELLING [None]
  - FALL [None]
  - ARTHROPOD BITE [None]
  - PRURITUS [None]
  - FOOT FRACTURE [None]
  - FATIGUE [None]
  - DRUG INEFFECTIVE [None]
  - JOINT STIFFNESS [None]
